FAERS Safety Report 12938844 (Version 1)
Quarter: 2016Q4

REPORT INFORMATION
  Report Type: Spontaneous
  Country: US (occurrence: US)
  Receive Date: 20161115
  Receipt Date: 20161115
  Transmission Date: 20170207
  Serious: Yes (Hospitalization)
  Sender: FDA-Public Use
  Company Number: US-ALVOGEN-2016-ALVOGEN-086381

PATIENT
  Age: 14 Year
  Sex: Female

DRUGS (3)
  1. LEVETIRACETAM. [Suspect]
     Active Substance: LEVETIRACETAM
     Indication: SEIZURE LIKE PHENOMENA
  2. OXCARBAZEPINE. [Suspect]
     Active Substance: OXCARBAZEPINE
     Indication: PRODUCT USED FOR UNKNOWN INDICATION
  3. HALOPERIDOL. [Suspect]
     Active Substance: HALOPERIDOL
     Indication: PRODUCT USED FOR UNKNOWN INDICATION

REACTIONS (7)
  - Hallucination [Recovered/Resolved]
  - Dystonia [Recovered/Resolved]
  - Lethargy [Recovered/Resolved]
  - Dyskinesia [Recovered/Resolved]
  - Neuroleptic malignant syndrome [Recovered/Resolved]
  - Crying [Recovered/Resolved]
  - Paranoia [Recovered/Resolved]
